FAERS Safety Report 14952601 (Version 1)
Quarter: 2018Q2

REPORT INFORMATION
  Report Type: Spontaneous
  Country: US (occurrence: US)
  Receive Date: 20180530
  Receipt Date: 20180530
  Transmission Date: 20180711
  Serious: No
  Sender: FDA-Public Use
  Company Number: US-PFIZER INC-2018219128

PATIENT
  Age: 65 Year
  Sex: Female

DRUGS (2)
  1. MEDROL [Suspect]
     Active Substance: METHYLPREDNISOLONE
     Indication: SYSTEMIC LUPUS ERYTHEMATOSUS
  2. METHOTREXATE SODIUM. [Suspect]
     Active Substance: METHOTREXATE SODIUM
     Indication: SYSTEMIC LUPUS ERYTHEMATOSUS

REACTIONS (2)
  - Body height decreased [Unknown]
  - Product use in unapproved indication [Unknown]
